FAERS Safety Report 10716844 (Version 1)
Quarter: 2015Q1

REPORT INFORMATION
  Report Type: Spontaneous
  Country: US (occurrence: US)
  Receive Date: 20150116
  Receipt Date: 20150116
  Transmission Date: 20150721
  Serious: No
  Sender: FDA-Public Use
  Company Number: US-BAYER-2015-007142

PATIENT
  Sex: Female

DRUGS (9)
  1. MARIJUANA [Concomitant]
     Active Substance: CANNABIS SATIVA SUBSP. INDICA TOP
     Dosage: UNK
  2. COPAXONE [Concomitant]
     Active Substance: GLATIRAMER ACETATE
  3. TYSABRI [Concomitant]
     Active Substance: NATALIZUMAB
  4. AVONEX [Concomitant]
     Active Substance: INTERFERON BETA-1A
  5. CALCIUM GLUCONATE [CALCIUM GLUCONATE] [Concomitant]
     Dosage: UNK
  6. VITAMIN D [Concomitant]
     Active Substance: CHOLECALCIFEROL
     Dosage: UNK
  7. THERAPEUTIC MULTIVITAMIN [VIT C,B5,B12,D2,B3,B6,RETINOL,B2,B1 HCL, [Concomitant]
     Dosage: UNK
  8. BETASERON [Suspect]
     Active Substance: INTERFERON BETA-1B
  9. CHANTIX [Concomitant]
     Active Substance: VARENICLINE TARTRATE
     Indication: SMOKING CESSATION THERAPY

REACTIONS (1)
  - Anti-interferon antibody positive [None]
